FAERS Safety Report 18373585 (Version 4)
Quarter: 2020Q4

REPORT INFORMATION
  Report Type: Spontaneous
  Country: US (occurrence: US)
  Receive Date: 20201012
  Receipt Date: 20201216
  Transmission Date: 20210114
  Serious: No
  Sender: FDA-Public Use
  Company Number: US-SA-2020SA275711

PATIENT

DRUGS (1)
  1. LANTUS [Suspect]
     Active Substance: INSULIN GLARGINE
     Indication: TYPE 2 DIABETES MELLITUS
     Dosage: 20 IU IN MORNING AND 50 IU AT NIGHT, BID
     Route: 065
     Dates: start: 2012

REACTIONS (7)
  - Injection site haemorrhage [Unknown]
  - Device issue [Unknown]
  - Hernia [Unknown]
  - Pancreatectomy [Unknown]
  - Incorrect dose administered by device [Unknown]
  - Blood glucose increased [Unknown]
  - Inappropriate schedule of product administration [Unknown]

NARRATIVE: CASE EVENT DATE: 20201004
